FAERS Safety Report 8613047-6 (Version None)
Quarter: 2012Q3

REPORT INFORMATION
  Report Type: 
  Country: None (occurrence: None)
  Receive Date: 20120822
  Receipt Date: 20120816
  Transmission Date: 20120928
  Serious: Yes (Other)
  Sender: FDA-Public Use
  Company Number: US-PFIZER INC-2012127118

PATIENT
  Age: 54 Year
  Sex: Male

DRUGS (2)
  1. LIPITOR [Suspect]
     Dosage: UNK
     Dates: start: 20120515, end: 20120615
  2. LIPITOR [Suspect]
     Indication: HYPERLIPIDAEMIA
     Dosage: 20 MG, DAILY
     Route: 048
     Dates: start: 20120128, end: 20120524

REACTIONS (5)
  - ARTHRALGIA [None]
  - BLOOD CREATINE PHOSPHOKINASE INCREASED [None]
  - MYALGIA [None]
  - FATIGUE [None]
  - BACK PAIN [None]
